FAERS Safety Report 5096134-1 (Version None)
Quarter: 2006Q3

REPORT INFORMATION
  Report Type: 
  Country: None (occurrence: None)
  Receive Date: 20060731
  Receipt Date: 20060428
  Transmission Date: 20061208
  Serious: No
  Sender: FDA-Public Use
  Company Number: 2006PV012929

PATIENT
  Age: 55 Year
  Sex: Male
  Weight: 83.9154 kg

DRUGS (5)
  1. BYETTA [Suspect]
     Indication: DIABETES MELLITUS NON-INSULIN-DEPENDENT
     Dosage: SEE IMAGE
     Route: 058
     Dates: start: 20060301, end: 20060401
  2. BYETTA [Suspect]
     Indication: DIABETES MELLITUS NON-INSULIN-DEPENDENT
     Dosage: SEE IMAGE
     Route: 058
     Dates: start: 20060401
  3. LANTUS [Concomitant]
  4. GLYBURIDE [Concomitant]
  5. AVANDAMET [Concomitant]

REACTIONS (3)
  - BLOOD GLUCOSE DECREASED [None]
  - CONSTIPATION [None]
  - DYSPEPSIA [None]
